FAERS Safety Report 8163977-7 (Version None)
Quarter: 2012Q1

REPORT INFORMATION
  Report Type: 
  Country: None (occurrence: None)
  Receive Date: 20120224
  Receipt Date: 20120214
  Transmission Date: 20120608
  Serious: Yes (Hospitalization)
  Sender: FDA-Public Use
  Company Number: CN-ACTELION-A-CH2012-61147

PATIENT
  Sex: Female
  Weight: 53 kg

DRUGS (4)
  1. SILDENAFIL CITRATE [Concomitant]
  2. TRACLEER [Suspect]
     Indication: PULMONARY ARTERIAL HYPERTENSION
     Dosage: 0.5 UNK, UNK
     Route: 048
     Dates: start: 20111128, end: 20111205
  3. TRACLEER [Suspect]
     Dosage: 0.25 , UNK
     Route: 048
     Dates: start: 20111226, end: 20111226
  4. NIFEDIPINE [Concomitant]

REACTIONS (11)
  - CHEST DISCOMFORT [None]
  - BLOOD PRESSURE DECREASED [None]
  - DECREASED APPETITE [None]
  - MALAISE [None]
  - PALPITATIONS [None]
  - INFLUENZA LIKE ILLNESS [None]
  - ABDOMINAL PAIN [None]
  - DYSPEPSIA [None]
  - NAUSEA [None]
  - ATRIAL FIBRILLATION [None]
  - DYSPNOEA [None]
